FAERS Safety Report 19311954 (Version 1)
Quarter: 2021Q2

REPORT INFORMATION
  Report Type: Report from Study
  Country: None (occurrence: AU)
  Receive Date: 20210527
  Receipt Date: 20210527
  Transmission Date: 20210717
  Serious: Yes (Hospitalization, Disabling)
  Sender: FDA-Public Use
  Company Number: AU-ABBVIE-21K-008-3920942-00

PATIENT
  Age: 73 Year
  Sex: Male

DRUGS (5)
  1. DUODOPA [Suspect]
     Active Substance: CARBIDOPA\LEVODOPA
     Indication: PARKINSON^S DISEASE
     Dosage: DUODOPA 100ML GEL CASSETTE.
     Route: 050
     Dates: start: 20180306
  2. DUODOPA [Suspect]
     Active Substance: CARBIDOPA\LEVODOPA
     Dosage: DOSE INCREASED
     Route: 050
  3. DUODOPA [Suspect]
     Active Substance: CARBIDOPA\LEVODOPA
     Dosage: DOSE DECREASED, CONTINUOUS DAYTIME RATE 3.3MLS/HR
     Route: 050
  4. DUODOPA [Suspect]
     Active Substance: CARBIDOPA\LEVODOPA
     Dosage: CONTINUE 2.2MLS/HR(NIGHT TIME PUMP) WITH MD: 5MLS AND ED OF 1ML WITH 1 HOUR LOCKOUT
     Route: 050
  5. DUODOPA [Suspect]
     Active Substance: CARBIDOPA\LEVODOPA
     Dosage: CONTINUOUS DAYTIME RATE 3.2MLS/HR, DOSE INCREASED
     Route: 050

REACTIONS (3)
  - Tremor [Not Recovered/Not Resolved]
  - Abdominal pain [Recovered/Resolved]
  - Stress [Unknown]

NARRATIVE: CASE EVENT DATE: 20210524
